FAERS Safety Report 11223003 (Version 1)
Quarter: 2015Q2

REPORT INFORMATION
  Report Type: Spontaneous
  Country: US (occurrence: US)
  Receive Date: 20150626
  Receipt Date: 20150626
  Transmission Date: 20150821
  Serious: Yes (Other)
  Sender: FDA-Public Use
  Company Number: US-PFIZER INC-2015209549

PATIENT
  Age: 23 Year
  Sex: Male
  Weight: 78 kg

DRUGS (5)
  1. HUMALOG [Concomitant]
     Active Substance: INSULIN LISPRO
     Indication: DIABETES MELLITUS
     Dosage: 8 UNITS 3 TIMES A DAY EVERY TIME HE EATS
  2. VASOTEC [Concomitant]
     Active Substance: ENALAPRIL MALEATE
     Indication: DYSURIA
  3. LANTUS [Concomitant]
     Active Substance: INSULIN GLARGINE
     Indication: DIABETES MELLITUS
     Dosage: AT 9PM EVERY NIGHT HE INJECTS 48 UNITS
  4. ADVIL [Suspect]
     Active Substance: IBUPROFEN
     Indication: ARTHRALGIA
     Dosage: 2 GELCAPS 200MG EACH ONCE
     Dates: start: 20150620, end: 20150620
  5. VASOTEC [Concomitant]
     Active Substance: ENALAPRIL MALEATE
     Indication: RENAL IMPAIRMENT
     Dosage: 2.5 MG, 1X/DAY

REACTIONS (2)
  - Diabetes mellitus inadequate control [Recovering/Resolving]
  - Feeling abnormal [Recovered/Resolved]

NARRATIVE: CASE EVENT DATE: 20150620
